FAERS Safety Report 7495015-3 (Version None)
Quarter: 2011Q2

REPORT INFORMATION
  Report Type: 
  Country: None (occurrence: None)
  Receive Date: 20110520
  Receipt Date: 20110516
  Transmission Date: 20111010
  Serious: Yes (Other)
  Sender: FDA-Public Use
  Company Number: BR-ELI_LILLY_AND_COMPANY-BR201105004834

PATIENT
  Sex: Female
  Weight: 84 kg

DRUGS (3)
  1. BYETTA [Suspect]
     Indication: TYPE 2 DIABETES MELLITUS
     Dosage: 5 UG, BID
     Route: 065
     Dates: start: 20110503
  2. INFLUENZA VACCINE [Concomitant]
     Dosage: UNK, UNKNOWN
     Route: 065
  3. LEVEMIR [Concomitant]
     Indication: TYPE 2 DIABETES MELLITUS
     Dosage: 44 IU, EACH MORNING
     Route: 065
     Dates: start: 20110506

REACTIONS (5)
  - PRURITUS GENERALISED [None]
  - EATING DISORDER [None]
  - HYPERGLYCAEMIA [None]
  - BODY HEIGHT DECREASED [None]
  - NAUSEA [None]
